FAERS Safety Report 4308652-1 (Version None)
Quarter: 2004Q1

REPORT INFORMATION
  Report Type: 
  Country: None (occurrence: None)
  Receive Date: 20040301
  Receipt Date: 20040217
  Transmission Date: 20041129
  Serious: Yes (Other)
  Sender: FDA-Public Use
  Company Number: 2004010584

PATIENT
  Age: 73 Year
  Sex: Male

DRUGS (15)
  1. DIFLUCAN [Suspect]
     Indication: ONYCHOMYCOSIS
     Dosage: 150 MG, (WEEKLY)
  2. NITROFURANTOIN [Suspect]
     Indication: URINARY TRACT INFECTION
     Dosage: 50 MG (DAILY)
  3. TERAZOSIN (TERAZOSIN) [Concomitant]
  4. CIMETIDINE [Concomitant]
  5. FLUTICASONE (FLUICASONE) [Concomitant]
  6. DIPHENHYDRAMINE HCL [Concomitant]
  7. IBUPROFEN [Concomitant]
  8. FLUOCINONIDE [Concomitant]
  9. CENTRUM SILVER (ASCORBIC ACID, TOCOPHERYL ACETAET, RETINOL, ZINC, CALC [Concomitant]
  10. TOCOPHEROL CONCENTRATE CAP [Concomitant]
  11. CALCIUM (CALCIUM) [Concomitant]
  12. ERGOCALCIFEROL (ERGOCALCIFEROL) [Concomitant]
  13. ACETYLSALICYLIC ACID SRT [Concomitant]
  14. POLYCARBOPHIL CALCIUM (POLYCARBOPHIL CALCIUM) [Concomitant]
  15. DOCUSATE SODIUM (DOCUSATE SODIUM) [Concomitant]

REACTIONS (16)
  - BRONCHITIS ACUTE [None]
  - CHRONIC OBSTRUCTIVE AIRWAYS DISEASE [None]
  - CREATININE RENAL CLEARANCE DECREASED [None]
  - DISEASE RECURRENCE [None]
  - DRUG INTERACTION [None]
  - FATIGUE [None]
  - HEPATOTOXICITY [None]
  - INGUINAL HERNIA [None]
  - ONYCHOMYCOSIS [None]
  - PLEURITIC PAIN [None]
  - PRODUCTIVE COUGH [None]
  - PULMONARY FIBROSIS [None]
  - PULMONARY OEDEMA [None]
  - PULMONARY TOXICITY [None]
  - RESPIRATORY GAS EXCHANGE DISORDER [None]
  - THERAPEUTIC AGENT TOXICITY [None]
